FAERS Safety Report 6371210-1 (Version None)
Quarter: 2009Q3

REPORT INFORMATION
  Report Type: 
  Country: None (occurrence: None)
  Receive Date: 20090918
  Receipt Date: 20090904
  Transmission Date: 20100115
  Serious: Yes (Other)
  Sender: FDA-Public Use
  Company Number: 8046526

PATIENT
  Sex: Female

DRUGS (1)
  1. KEPPRA [Suspect]
     Dosage: 1500 MG /D PO
     Route: 048

REACTIONS (4)
  - ABORTION SPONTANEOUS [None]
  - DRUG EXPOSURE DURING PREGNANCY [None]
  - METRORRHAGIA [None]
  - PREGNANCY [None]
